FAERS Safety Report 14790663 (Version 1)
Quarter: 2018Q2

REPORT INFORMATION
  Report Type: Spontaneous
  Country: US (occurrence: US)
  Receive Date: 20180413
  Receipt Date: 20180413
  Transmission Date: 20180711
  Serious: No
  Sender: FDA-Public Use
  Company Number: None

PATIENT
  Age: 75 Year
  Sex: Female
  Weight: 75.75 kg

DRUGS (1)
  1. CAPECITABINE. [Suspect]
     Active Substance: CAPECITABINE
     Indication: BREAST CANCER
     Dosage: ?          OTHER FREQUENCY:3TMORNINGAND4TEVEN;?
     Route: 048
     Dates: start: 20170925

REACTIONS (2)
  - Unevaluable event [None]
  - Peripheral swelling [None]

NARRATIVE: CASE EVENT DATE: 20180228
